FAERS Safety Report 13256615 (Version 4)
Quarter: 2019Q1

REPORT INFORMATION
  Report Type: Report from Study
  Country: DE (occurrence: DE)
  Receive Date: 20170221
  Receipt Date: 20190124
  Transmission Date: 20190417
  Serious: Yes (Death, Hospitalization, Other)
  Sender: FDA-Public Use
  Company Number: DE-INCYTE CORPORATION-2014IN001386

PATIENT

DRUGS (6)
  1. ALLOPURINOL. [Concomitant]
     Active Substance: ALLOPURINOL
     Indication: HYPERURICAEMIA
     Dosage: 300 MG, QD
     Route: 065
     Dates: start: 20120711
  2. INCB018424 [Suspect]
     Active Substance: RUXOLITINIB
     Indication: MYELOFIBROSIS
     Dosage: 30 MG, QD
     Route: 048
     Dates: start: 20121207, end: 20130102
  3. EXJADE [Concomitant]
     Active Substance: DEFERASIROX
     Indication: HAEMOSIDEROSIS
     Dosage: 1000 MG, QD
     Route: 065
     Dates: start: 20121122
  4. INCB018424 [Suspect]
     Active Substance: RUXOLITINIB
     Dosage: 15 MG, QD
     Route: 048
     Dates: start: 20130103, end: 20130131
  5. INCB018424 [Suspect]
     Active Substance: RUXOLITINIB
     Dosage: 30 MG, QD
     Route: 048
     Dates: start: 20130201, end: 20131120
  6. INCB018424 [Suspect]
     Active Substance: RUXOLITINIB
     Dosage: 10 MG, QD
     Route: 048
     Dates: start: 20131206, end: 20140224

REACTIONS (24)
  - Aortic arteriosclerosis [Unknown]
  - Cytopenia [Fatal]
  - Skin haemorrhage [Not Recovered/Not Resolved]
  - Oedema peripheral [Not Recovered/Not Resolved]
  - Ascites [Not Recovered/Not Resolved]
  - Fatigue [Fatal]
  - Abdominal tenderness [Unknown]
  - Right ventricular failure [Fatal]
  - Lymphoedema [Fatal]
  - Abdominal distension [Unknown]
  - Atelectasis [Not Recovered/Not Resolved]
  - Cardiac murmur [Fatal]
  - Atrial fibrillation [Fatal]
  - Peripheral arterial occlusive disease [Unknown]
  - Asthenia [Fatal]
  - Abdominal pain upper [Unknown]
  - Venous thrombosis [Unknown]
  - Dyspnoea [Unknown]
  - Splenic vein occlusion [Unknown]
  - Myelofibrosis [Fatal]
  - Cholelithiasis [Unknown]
  - Pain in extremity [Unknown]
  - General physical health deterioration [Fatal]
  - Liver disorder [Unknown]

NARRATIVE: CASE EVENT DATE: 201303
